FAERS Safety Report 8179218-0 (Version None)
Quarter: 2012Q1

REPORT INFORMATION
  Report Type: 
  Country: None (occurrence: None)
  Receive Date: 20120227
  Receipt Date: 20120214
  Transmission Date: 20120608
  Serious: Yes (Other)
  Sender: FDA-Public Use
  Company Number: 1196977

PATIENT
  Age: 95 Year
  Sex: Female
  Weight: 26.3086 kg

DRUGS (1)
  1. VANCOMYCIN HYDROCHLORIDE [Suspect]
     Indication: ARTHRITIS BACTERIAL
     Dosage: 500 MG MILLIGRAM(S), 1 DAY, INTRAVENOUS (NOT OTHERWISE SPECIFIED)
     Route: 042
     Dates: start: 20120111, end: 20120117

REACTIONS (3)
  - MOUTH ULCERATION [None]
  - HYPOPHAGIA [None]
  - PALLOR [None]
